FAERS Safety Report 6963869-2 (Version None)
Quarter: 2010Q3

REPORT INFORMATION
  Report Type: 
  Country: None (occurrence: None)
  Receive Date: 20100902
  Receipt Date: 20100831
  Transmission Date: 20110219
  Serious: Yes (Life-Threatening, Hospitalization)
  Sender: FDA-Public Use
  Company Number: PHFR2010GB02256

PATIENT
  Sex: Male

DRUGS (4)
  1. CLOZARIL [Suspect]
     Indication: SCHIZOPHRENIA
     Dosage: 400 MG, QD
     Route: 048
     Dates: start: 20010301
  2. CLOZARIL [Suspect]
     Dosage: UNK
     Dates: start: 20100809
  3. LOFEPRAMINE [Suspect]
     Indication: DEPRESSION
     Dosage: 70+140 MG
     Route: 048
  4. LOFEPRAMINE [Suspect]
     Dosage: UNK
     Dates: start: 20100809

REACTIONS (8)
  - AMNESIA [None]
  - BLOOD CREATINE PHOSPHOKINASE INCREASED [None]
  - HYPOTENSION [None]
  - MOBILITY DECREASED [None]
  - MYOGLOBIN BLOOD INCREASED [None]
  - OVERDOSE [None]
  - TACHYCARDIA [None]
  - VOMITING [None]
